FAERS Safety Report 18248253 (Version 1)
Quarter: 2020Q3

REPORT INFORMATION
  Report Type: Report from Study
  Country: CA (occurrence: CA)
  Receive Date: 20200909
  Receipt Date: 20200909
  Transmission Date: 20201103
  Serious: Yes (Other)
  Sender: FDA-Public Use
  Company Number: CA-JNJFOC-20180725317

PATIENT
  Age: 16 Year
  Sex: Female
  Weight: 59 kg

DRUGS (2)
  1. REMICADE [Suspect]
     Active Substance: INFLIXIMAB
     Indication: CROHN^S DISEASE
     Dosage: STRENGTH = 100 MILLIGRAM.
     Route: 042
     Dates: start: 20180706
  2. PREDNISONE. [Concomitant]
     Active Substance: PREDNISONE
     Route: 065

REACTIONS (6)
  - Haematochezia [Not Recovered/Not Resolved]
  - Abdominal pain [Unknown]
  - Headache [Recovered/Resolved]
  - Drug ineffective [Not Recovered/Not Resolved]
  - Infusion related reaction [Recovered/Resolved]
  - Rash papular [Not Recovered/Not Resolved]

NARRATIVE: CASE EVENT DATE: 2018
